FAERS Safety Report 4878798-8 (Version None)
Quarter: 2006Q1

REPORT INFORMATION
  Report Type: 
  Country: None (occurrence: None)
  Receive Date: 20060110
  Receipt Date: 20060110
  Transmission Date: 20060701
  Serious: Yes (Death, Life-Threatening, Hospitalization)
  Sender: FDA-Public Use
  Company Number: None

PATIENT
  Age: 81 Year
  Sex: Male

DRUGS (1)
  1. CELLCEPT [Suspect]
     Indication: PANCREATIC CARCINOMA
     Dosage: 1500 MG    TWICE DAILY   PO
     Route: 048
     Dates: start: 20051214, end: 20060106

REACTIONS (1)
  - PULMONARY EMBOLISM [None]
